FAERS Safety Report 20834221 (Version 25)
Quarter: 2025Q1

REPORT INFORMATION
  Report Type: Report from Study
  Country: US (occurrence: US)
  Receive Date: 20220516
  Receipt Date: 20250228
  Transmission Date: 20250408
  Serious: Yes (Other)
  Sender: TAKEDA
  Company Number: US-TAKEDA-2021TUS045942

PATIENT
  Age: 46 Year
  Sex: Female
  Weight: 66 kg

DRUGS (34)
  1. HUMAN IMMUNOGLOBULIN G [Suspect]
     Active Substance: HUMAN IMMUNOGLOBULIN G
     Indication: Immunodeficiency common variable
     Dosage: UNK UNK, Q8WEEKS
     Dates: start: 20210211
  2. HUMAN IMMUNOGLOBULIN G [Suspect]
     Active Substance: HUMAN IMMUNOGLOBULIN G
     Dosage: 45 GRAM, Q8WEEKS
  3. HUMAN IMMUNOGLOBULIN G [Suspect]
     Active Substance: HUMAN IMMUNOGLOBULIN G
     Dosage: UNK UNK, Q8WEEKS
     Dates: start: 20210719
  4. HUMAN IMMUNOGLOBULIN G [Suspect]
     Active Substance: HUMAN IMMUNOGLOBULIN G
     Dosage: 45 GRAM, Q6WEEKS
  5. HUMAN IMMUNOGLOBULIN G [Suspect]
     Active Substance: HUMAN IMMUNOGLOBULIN G
     Dosage: 7.5 GRAM, 1/WEEK
  6. HUMAN IMMUNOGLOBULIN G [Suspect]
     Active Substance: HUMAN IMMUNOGLOBULIN G
     Dosage: 7.5 GRAM, 1/WEEK
     Dates: start: 20241205
  7. CIPRO [Suspect]
     Active Substance: CIPROFLOXACIN HYDROCHLORIDE
     Indication: Product used for unknown indication
  8. EPINEPHRINE [Concomitant]
     Active Substance: EPINEPHRINE
  9. ACETAMINOPHEN [Concomitant]
     Active Substance: ACETAMINOPHEN
  10. CARVEDILOL [Concomitant]
     Active Substance: CARVEDILOL
  11. KETOROLAC TROMETHAMINE [Concomitant]
     Active Substance: KETOROLAC TROMETHAMINE
  12. ONDANSETRON [Concomitant]
     Active Substance: ONDANSETRON
  13. ONDANSETRON HYDROCHLORIDE [Concomitant]
     Active Substance: ONDANSETRON HYDROCHLORIDE
  14. SODIUM CHLORIDE [Concomitant]
     Active Substance: SODIUM CHLORIDE
  15. MAGNESIUM [Concomitant]
     Active Substance: MAGNESIUM
  16. FISH OIL [Concomitant]
     Active Substance: FISH OIL
  17. VITAMIN D3 [Concomitant]
     Active Substance: CHOLECALCIFEROL
  18. VITAMINS NOS [Concomitant]
     Active Substance: VITAMINS
  19. NEXIUM [Concomitant]
     Active Substance: ESOMEPRAZOLE MAGNESIUM
  20. LOMOTIL [Concomitant]
     Active Substance: ATROPINE SULFATE\DIPHENOXYLATE HYDROCHLORIDE
  21. Zinc lozenges [Concomitant]
  22. DEXAMETHASONE [Concomitant]
     Active Substance: DEXAMETHASONE
  23. VITAMIN B [Concomitant]
     Active Substance: VITAMIN B
  24. DIPHENHYDRAMINE [Concomitant]
     Active Substance: DIPHENHYDRAMINE
  25. DIPHENHYDRAMINE HYDROCHLORIDE [Concomitant]
     Active Substance: DIPHENHYDRAMINE HYDROCHLORIDE
  26. TRAZODONE HCL [Concomitant]
     Active Substance: TRAZODONE HYDROCHLORIDE
  27. LEXAPRO [Concomitant]
     Active Substance: ESCITALOPRAM OXALATE
  28. SODIUM CHLORIDE [Concomitant]
     Active Substance: SODIUM CHLORIDE
  29. OXYCODONE AND ACETAMINOPHEN [Concomitant]
     Active Substance: ACETAMINOPHEN\OXYCODONE HYDROCHLORIDE
  30. VITAMIN C [Concomitant]
     Active Substance: ASCORBIC ACID
  31. VITAMIN B12 [Concomitant]
     Active Substance: CYANOCOBALAMIN
  32. Covid-19 vaccine [Concomitant]
  33. CODEINE GUAIFENESIN [Concomitant]
     Active Substance: CODEINE PHOSPHATE\GUAIFENESIN
  34. LIDOCAINE [Concomitant]
     Active Substance: LIDOCAINE

REACTIONS (50)
  - Clostridium difficile infection [Unknown]
  - Kidney infection [Unknown]
  - Gastrointestinal inflammation [Recovering/Resolving]
  - Colitis [Recovering/Resolving]
  - Pneumonia [Unknown]
  - Diabetes mellitus [Unknown]
  - Meningitis aseptic [Unknown]
  - Skin mass [Unknown]
  - Infusion site infection [Unknown]
  - Pharyngitis streptococcal [Unknown]
  - Gastroenteritis viral [Unknown]
  - Respiratory syncytial virus infection [Unknown]
  - Influenza [Unknown]
  - Laryngitis [Unknown]
  - Seasonal allergy [Unknown]
  - Spinal pain [Unknown]
  - Gait disturbance [Unknown]
  - Nasopharyngitis [Unknown]
  - Infusion related reaction [Unknown]
  - Viral infection [Unknown]
  - Tenderness [Unknown]
  - Urinary tract infection bacterial [Not Recovered/Not Resolved]
  - Food poisoning [Recovering/Resolving]
  - COVID-19 [Unknown]
  - Cystitis [Unknown]
  - Gastrointestinal viral infection [Unknown]
  - Ear infection [Unknown]
  - Gastrointestinal disorder [Unknown]
  - Productive cough [Unknown]
  - Bronchitis [Recovering/Resolving]
  - Constipation [Unknown]
  - Incorrect drug administration rate [Unknown]
  - Inappropriate schedule of product administration [Unknown]
  - Upper respiratory tract infection [Unknown]
  - Pain [Unknown]
  - Sinusitis [Unknown]
  - Abdominal discomfort [Unknown]
  - Decreased appetite [Unknown]
  - Influenza like illness [Unknown]
  - Malaise [Unknown]
  - Back pain [Unknown]
  - Chills [Unknown]
  - Vomiting [Unknown]
  - Pyrexia [Recovered/Resolved]
  - Migraine [Not Recovered/Not Resolved]
  - Diarrhoea [Recovering/Resolving]
  - Nausea [Unknown]
  - Fatigue [Unknown]
  - Headache [Not Recovered/Not Resolved]
  - Cough [Unknown]

NARRATIVE: CASE EVENT DATE: 20211124
